FAERS Safety Report 9087742 (Version 1)
Quarter: 2013Q1

REPORT INFORMATION
  Report Type: Spontaneous
  Country: US (occurrence: US)
  Receive Date: 20130201
  Receipt Date: 20130201
  Transmission Date: 20140127
  Serious: No
  Sender: FDA-Public Use
  Company Number: US-GALDERMA-US-GDP-12414690

PATIENT
  Sex: Female

DRUGS (3)
  1. EPIDUO [Suspect]
     Indication: ACNE
     Route: 061
     Dates: start: 201207
  2. CETAPHIL DERMACONTROL SPF 30 [Suspect]
     Indication: ACNE
     Route: 061
     Dates: start: 201207
  3. CETAPHIL [Suspect]
     Indication: ACNE
     Route: 061
     Dates: start: 201207

REACTIONS (2)
  - Skin fragility [Not Recovered/Not Resolved]
  - Dry skin [Not Recovered/Not Resolved]
